FAERS Safety Report 11518605 (Version 1)
Quarter: 2015Q3

REPORT INFORMATION
  Report Type: Spontaneous
  Country: US (occurrence: US)
  Receive Date: 20150917
  Receipt Date: 20150917
  Transmission Date: 20151125
  Serious: Yes (Death)
  Sender: FDA-Public Use
  Company Number: US-BAYER-2015-419071

PATIENT
  Age: 68 Year
  Sex: Female

DRUGS (2)
  1. DTIC-DOME [Suspect]
     Active Substance: DACARBAZINE
     Indication: MALIGNANT MELANOMA OF SITES OTHER THAN SKIN
  2. DTIC-DOME [Suspect]
     Active Substance: DACARBAZINE
     Indication: METASTASES TO LIVER

REACTIONS (1)
  - Vulval cancer stage IV [Fatal]
